FAERS Safety Report 6941576-X (Version None)
Quarter: 2010Q3

REPORT INFORMATION
  Report Type: 
  Country: None (occurrence: None)
  Receive Date: 20100825
  Receipt Date: 20100817
  Transmission Date: 20110219
  Serious: Yes (Hospitalization)
  Sender: FDA-Public Use
  Company Number: US-US-EMD SERONO, INC.-7012363

PATIENT
  Sex: Female
  Weight: 86 kg

DRUGS (1)
  1. REBIF [Suspect]
     Indication: MULTIPLE SCLEROSIS
     Route: 058
     Dates: start: 20100519

REACTIONS (5)
  - FEELING HOT [None]
  - INJECTION SITE CELLULITIS [None]
  - INJECTION SITE PAIN [None]
  - INSOMNIA [None]
  - WHITE BLOOD CELL COUNT DECREASED [None]
